FAERS Safety Report 8305724-1 (Version None)
Quarter: 2012Q2

REPORT INFORMATION
  Report Type: 
  Country: None (occurrence: None)
  Receive Date: 20120423
  Receipt Date: 20120417
  Transmission Date: 20120825
  Serious: Yes (Death, Other)
  Sender: FDA-Public Use
  Company Number: CN-JNJFOC-20120408724

PATIENT
  Sex: Female

DRUGS (3)
  1. FLUDARABINE PHOSPHATE [Suspect]
     Indication: T-CELL LYMPHOMA
     Route: 048
  2. DEXAMETHASONE [Suspect]
     Indication: T-CELL LYMPHOMA
     Route: 048
  3. DOXORUBICIN HCL [Suspect]
     Indication: T-CELL LYMPHOMA
     Route: 042

REACTIONS (3)
  - NEUTROPENIA [None]
  - NEOPLASM MALIGNANT [None]
  - PNEUMONITIS [None]
